FAERS Safety Report 8431972-6 (Version None)
Quarter: 2012Q2

REPORT INFORMATION
  Report Type: 
  Country: None (occurrence: None)
  Receive Date: 20120613
  Receipt Date: 20120201
  Transmission Date: 20120825
  Serious: No
  Sender: FDA-Public Use
  Company Number: US-ASTRAZENECA-2009SE28216

PATIENT
  Age: 64 Year
  Sex: Female
  Weight: 78.5 kg

DRUGS (20)
  1. RHINOCORT [Suspect]
     Dosage: 32 MCG FOUR SPRAYS, EVERY DAY
     Route: 045
     Dates: start: 20111215
  2. COREG [Concomitant]
  3. POTASSIUM [Concomitant]
  4. PROAIR HFA [Concomitant]
     Dosage: TWO INHALATIONS QID, PRN
     Route: 055
     Dates: start: 20111206
  5. ZANTAC [Concomitant]
     Dosage: PRN
     Dates: start: 20110526
  6. DILTIAZEM [Concomitant]
  7. SYMBICORT [Suspect]
     Indication: CHRONIC OBSTRUCTIVE PULMONARY DISEASE
     Dosage: 320 MCG TWO TIMES A DAY
     Route: 055
     Dates: start: 20091013
  8. TOPROL-XL [Suspect]
     Route: 048
  9. ARISTOCORT [Concomitant]
  10. ATIVAN [Concomitant]
     Dates: start: 20111206
  11. ZYRTEC [Concomitant]
  12. LISINOPRIL [Suspect]
     Route: 048
  13. SYMBICORT [Suspect]
     Dosage: 160-4.5 TWO PUFFS BID
     Route: 055
     Dates: start: 20110616
  14. METOPROLOL SUCCINATE [Suspect]
     Route: 048
     Dates: start: 20111122
  15. PROCARDIA XL [Concomitant]
     Dates: start: 20111206
  16. COZAAR [Concomitant]
     Dates: start: 20110302
  17. ACIPHEX [Concomitant]
     Dates: start: 20110825
  18. LASIX [Concomitant]
     Dates: start: 20111206
  19. MOBIC [Concomitant]
     Dosage: 7.5 MG BID, PRN
     Dates: start: 20110818
  20. NASACORT AQ [Concomitant]
     Dosage: 55 MCG TWO SPRAY QD
     Dates: start: 20110413

REACTIONS (6)
  - PAIN [None]
  - COUGH [None]
  - ORAL CANDIDIASIS [None]
  - DIARRHOEA [None]
  - OROPHARYNGEAL PAIN [None]
  - SLEEP DISORDER [None]
